FAERS Safety Report 7124420-X (Version None)
Quarter: 2010Q4

REPORT INFORMATION
  Report Type: 
  Country: None (occurrence: None)
  Receive Date: 20101126
  Receipt Date: 20101116
  Transmission Date: 20110411
  Serious: Yes (Other)
  Sender: FDA-Public Use
  Company Number: US-BAXTER-2010BH028839

PATIENT

DRUGS (2)
  1. GAMMAGARD LIQUID [Suspect]
     Indication: DEMENTIA ALZHEIMER'S TYPE
     Route: 042
     Dates: start: 20080806, end: 20080806
  2. GAMMAGARD LIQUID [Suspect]
     Route: 042

REACTIONS (1)
  - DYSPNOEA [None]
